FAERS Safety Report 5247099-0 (Version None)
Quarter: 2007Q1

REPORT INFORMATION
  Report Type: 
  Country: None (occurrence: None)
  Receive Date: 20070226
  Receipt Date: 20070216
  Transmission Date: 20070707
  Serious: Yes (Life-Threatening)
  Sender: FDA-Public Use
  Company Number: JP-MERCK-0701USA02861

PATIENT
  Age: 34 Year
  Sex: Female
  Weight: 50 kg

DRUGS (19)
  1. PRIMAXIN [Suspect]
     Indication: PNEUMONIA ASPIRATION
     Route: 042
     Dates: start: 20061205, end: 20061215
  2. MODACIN [Concomitant]
     Indication: PNEUMONIA
     Route: 042
     Dates: start: 20061129, end: 20061201
  3. PRODIF [Concomitant]
     Indication: PNEUMONIA ASPIRATION
     Route: 042
     Dates: start: 20061129, end: 20061201
  4. PASIL [Concomitant]
     Indication: PNEUMONIA ASPIRATION
     Route: 042
     Dates: start: 20061201, end: 20061204
  5. MICAFUNGIN SODIUM [Concomitant]
     Indication: PNEUMONIA ASPIRATION
     Route: 042
     Dates: start: 20061201, end: 20061212
  6. TARGOCID [Concomitant]
     Indication: PNEUMONIA ASPIRATION
     Route: 042
     Dates: start: 20061203, end: 20061204
  7. HABEKACIN [Suspect]
     Indication: PNEUMONIA ASPIRATION
     Route: 042
     Dates: start: 20061204, end: 20061218
  8. AMOXAPINE [Concomitant]
     Indication: DEPRESSION
     Route: 048
  9. AMOXAPINE [Concomitant]
     Indication: EATING DISORDER
     Route: 048
  10. PAXIL [Concomitant]
     Indication: DEPRESSION
     Route: 048
  11. PAXIL [Concomitant]
     Indication: EATING DISORDER
     Route: 048
  12. SERENAL (OXAZOLAM) [Concomitant]
     Indication: DEPRESSION
     Route: 048
  13. SERENAL (OXAZOLAM) [Concomitant]
     Indication: EATING DISORDER
     Route: 048
  14. AMOXAPINE [Concomitant]
     Route: 048
  15. LUDIOMIL [Concomitant]
     Route: 048
  16. LEXOTAN [Concomitant]
     Route: 048
  17. PAXIL [Concomitant]
     Route: 048
  18. RHYTHMY [Concomitant]
     Route: 048
  19. SERENAL (OXAZOLAM) [Concomitant]
     Route: 048

REACTIONS (1)
  - INTERSTITIAL LUNG DISEASE [None]
